FAERS Safety Report 23287295 (Version 1)
Quarter: 2023Q4

REPORT INFORMATION
  Report Type: Spontaneous
  Country: US (occurrence: US)
  Receive Date: 20231212
  Receipt Date: 20231212
  Transmission Date: 20240110
  Serious: Yes (Hospitalization, Other)
  Sender: FDA-Public Use
  Company Number: US-JUBILANT CADISTA PHARMACEUTICALS-2023US001548

PATIENT

DRUGS (14)
  1. RISPERIDONE [Suspect]
     Active Substance: RISPERIDONE
     Indication: Schizophrenia
     Dosage: 2MG ODT AT NIGHT
     Dates: start: 20231119
  2. RISPERIDONE [Suspect]
     Active Substance: RISPERIDONE
     Dosage: ADDED 1MG ODT IN AM AND 2MG ODT AT NIGHT
     Dates: start: 20231120
  3. RISPERIDONE [Suspect]
     Active Substance: RISPERIDONE
     Dosage: 2 MG, TWICE DAILY
     Dates: start: 20231121, end: 20231124
  4. RISPERIDONE [Suspect]
     Active Substance: RISPERIDONE
     Dosage: 3MG TWICE DAILY AS 2MG ODT PLUS (2) 0.5MG ODT.
     Dates: start: 20231125, end: 20231126
  5. DIPHENHYDRAMINE [Concomitant]
     Active Substance: DIPHENHYDRAMINE
     Indication: Product used for unknown indication
     Dosage: ONE TIME DOSES ON NOV. 17TH
  6. HALDOL [Concomitant]
     Active Substance: HALOPERIDOL
     Indication: Abnormal behaviour
     Dosage: ONE TIME DOSES ON NOV. 17TH
  7. LORAZEPAM [Concomitant]
     Active Substance: LORAZEPAM
     Indication: Product used for unknown indication
     Dosage: ONE TIME DOSES ON NOV. 17TH
  8. OLANZAPINE [Concomitant]
     Active Substance: OLANZAPINE
     Indication: Agitation
     Dosage: ONE DOSE ON THE 19TH
  9. HYDROXYZINE [Concomitant]
     Active Substance: HYDROXYZINE HYDROCHLORIDE
     Indication: Anxiety
     Dosage: THREE TIMES DAILY AS NEEDED FOR ANXIETY DOSED ONCE ON EACH DAY, NOV 19, 22, 824
  10. TYLENOL [Concomitant]
     Active Substance: ACETAMINOPHEN
     Indication: Product used for unknown indication
     Dosage: UNK,  UNK
  11. TUMS [Concomitant]
     Active Substance: CALCIUM CARBONATE
     Indication: Product used for unknown indication
     Dosage: UNK,  UNK
  12. FOLIC ACID [Concomitant]
     Active Substance: FOLIC ACID
     Indication: Product used for unknown indication
     Dosage: UNK,  UNK
  13. IBUPROFEN [Concomitant]
     Active Substance: IBUPROFEN
     Indication: Product used for unknown indication
     Dosage: UNK,  UNK
  14. MIRALAX [Concomitant]
     Active Substance: POLYETHYLENE GLYCOL 3350
     Indication: Product used for unknown indication
     Dosage: UNK,UNK

REACTIONS (2)
  - Schizophrenia [Not Recovered/Not Resolved]
  - Symptom recurrence [Not Recovered/Not Resolved]
